FAERS Safety Report 21700022 (Version 1)
Quarter: 2022Q4

REPORT INFORMATION
  Report Type: Spontaneous
  Country: US (occurrence: None)
  Receive Date: 20221207
  Receipt Date: 20221207
  Transmission Date: 20230113
  Serious: Yes (Life-Threatening, Disabling)
  Sender: FDA-Public Use
  Company Number: None

PATIENT
  Age: 23 Year
  Sex: Female
  Weight: 58.5 kg

DRUGS (2)
  1. LORYNA [Suspect]
     Active Substance: DROSPIRENONE\ETHINYL ESTRADIOL
     Indication: Acne
     Dates: start: 20220516, end: 20220522
  2. one-a-day-vitamin [Concomitant]

REACTIONS (7)
  - Depression [None]
  - Anxiety [None]
  - Panic attack [None]
  - Depersonalisation/derealisation disorder [None]
  - Derealisation [None]
  - Dissociation [None]
  - Mental disorder [None]

NARRATIVE: CASE EVENT DATE: 20220522
